FAERS Safety Report 8046120 (Version 4)
Quarter: 2012Q4

REPORT INFORMATION
  Report Type: 
  Country: US (occurrence: US)
  Receive Date: 20110720
  Receipt Date: 20120921
  Transmission Date: 20130627
  Serious: Yes (Life-Threatening, Hospitalization)
  Sender: FDA-Public Use
  Company Number: US-BAYER-2011-062468

PATIENT
  Age: 30 Year
  Sex: Female
  Weight: 100 kg

DRUGS (10)
  1. YAZ [Suspect]
     Indication: ORAL CONTRACEPTION
     Dosage: UNK
     Dates: start: 200705, end: 200707
  2. YASMIN [Suspect]
  3. KEPPRA [Concomitant]
  4. LEVETIRACETAM [Concomitant]
  5. ANTIMALARIALS [Concomitant]
  6. TORADOL [Concomitant]
  7. ANTIEMETICS AND ANTINAUSEANTS [Concomitant]
  8. DILANTIN [Concomitant]
  9. ATIVAN [Concomitant]
  10. DILAUDID [Concomitant]
     Indication: HEADACHE

REACTIONS (8)
  - Intracranial venous sinus thrombosis [None]
  - Grand mal convulsion [None]
  - Fatigue [None]
  - Asthenia [None]
  - Pain [None]
  - General physical health deterioration [None]
  - Cerebral infarction [None]
  - Emotional distress [None]
